FAERS Safety Report 7023509-3 (Version None)
Quarter: 2010Q3

REPORT INFORMATION
  Report Type: 
  Country: None (occurrence: None)
  Receive Date: 20100929
  Receipt Date: 20100929
  Transmission Date: 20110219
  Serious: Yes (Death, Other)
  Sender: FDA-Public Use
  Company Number: None

PATIENT
  Age: 74 Year
  Sex: Male
  Weight: 109 kg

DRUGS (1)
  1. ROPINIROLE [Suspect]
     Dosage: 4 MG HS PO
     Route: 048
     Dates: start: 20100505, end: 20100512

REACTIONS (1)
  - HALLUCINATION [None]
